FAERS Safety Report 7234935-1 (Version None)
Quarter: 2011Q1

REPORT INFORMATION
  Report Type: 
  Country: None (occurrence: None)
  Receive Date: 20110120
  Receipt Date: 20110110
  Transmission Date: 20110831
  Serious: Yes (Other)
  Sender: FDA-Public Use
  Company Number: PHFR2010GB02452

PATIENT
  Sex: Female

DRUGS (2)
  1. HISTIDINE [Concomitant]
     Dosage: 1 MG, TID
  2. CLOZARIL [Suspect]
     Indication: SCHIZOPHRENIA
     Dosage: 100 MG NOCTE
     Route: 048
     Dates: start: 20100706

REACTIONS (3)
  - TACHYCARDIA [None]
  - NASOPHARYNGITIS [None]
  - HYPERTENSION [None]
